FAERS Safety Report 9868966 (Version 10)
Quarter: 2015Q2

REPORT INFORMATION
  Report Type: Report from Study
  Country: AU (occurrence: AU)
  Receive Date: 20140205
  Receipt Date: 20150629
  Transmission Date: 20150821
  Serious: Yes (Other)
  Sender: FDA-Public Use
  Company Number: AU-ROCHE-1324295

PATIENT
  Age: 52 Year
  Sex: Female

DRUGS (2)
  1. ACTEMRA [Suspect]
     Active Substance: TOCILIZUMAB
     Indication: RHEUMATOID ARTHRITIS
     Route: 042
     Dates: start: 20131122
  2. ACTEMRA [Suspect]
     Active Substance: TOCILIZUMAB
     Route: 042
     Dates: start: 20131122

REACTIONS (25)
  - Abdominal pain upper [Recovered/Resolved]
  - Urine odour abnormal [Unknown]
  - Nasopharyngitis [Unknown]
  - Headache [Unknown]
  - Chromaturia [Unknown]
  - Dizziness [Unknown]
  - Ear pain [Unknown]
  - Lower respiratory tract infection [Recovered/Resolved]
  - Diarrhoea [Recovered/Resolved]
  - Cough [Recovered/Resolved]
  - Dysuria [Unknown]
  - Abdominal pain upper [Unknown]
  - Hypotension [Recovering/Resolving]
  - Fatigue [Recovering/Resolving]
  - Nasal congestion [Unknown]
  - Red blood cell sedimentation rate increased [Unknown]
  - Hypotension [Unknown]
  - Oropharyngeal pain [Recovered/Resolved]
  - Renal pain [Unknown]
  - Sneezing [Recovered/Resolved]
  - Pyrexia [Recovered/Resolved]
  - Ear infection [Recovered/Resolved]
  - Thirst [Unknown]
  - Urinary tract infection [Recovered/Resolved]
  - Nausea [Recovered/Resolved]

NARRATIVE: CASE EVENT DATE: 201312
